FAERS Safety Report 9922152 (Version 1)
Quarter: 2014Q1

REPORT INFORMATION
  Report Type: Spontaneous
  Country: US (occurrence: US)
  Receive Date: 20140225
  Receipt Date: 20140225
  Transmission Date: 20141002
  Serious: Yes (Hospitalization)
  Sender: FDA-Public Use
  Company Number: US-NOVOPROD-400831

PATIENT
  Age: 32 Year
  Sex: Female

DRUGS (2)
  1. NOVOLIN R [Suspect]
     Indication: TYPE 2 DIABETES MELLITUS
     Dosage: 10 UNITS DAILY
     Route: 058
  2. CORTISONE [Concomitant]
     Indication: LUNG DISORDER
     Dosage: UNK

REACTIONS (3)
  - Pneumonia [Recovered/Resolved]
  - Influenza [Recovered/Resolved]
  - Blood glucose increased [Not Recovered/Not Resolved]
